FAERS Safety Report 16150355 (Version 1)
Quarter: 2019Q2

REPORT INFORMATION
  Report Type: Spontaneous
  Country: TW (occurrence: TW)
  Receive Date: 20190403
  Receipt Date: 20190403
  Transmission Date: 20190711
  Serious: Yes (Other)
  Sender: FDA-Public Use
  Company Number: PHHY2019TW072935

PATIENT
  Age: 47 Year
  Sex: Female

DRUGS (14)
  1. ZOLADEX [Suspect]
     Active Substance: GOSERELIN ACETATE
     Dosage: UNK
     Route: 065
     Dates: start: 201605, end: 201611
  2. XELODA [Suspect]
     Active Substance: CAPECITABINE
     Dosage: UNK
     Route: 065
     Dates: start: 20170222
  3. ZOLADEX [Suspect]
     Active Substance: GOSERELIN ACETATE
     Dosage: UNK
     Route: 065
     Dates: start: 201605
  4. IBRANCE [Suspect]
     Active Substance: PALBOCICLIB
     Indication: BREAST CANCER FEMALE
     Dosage: 125 MG, QD
     Route: 065
     Dates: start: 20171221
  5. FEMARA [Suspect]
     Active Substance: LETROZOLE
     Indication: BREAST CANCER FEMALE
     Dosage: UNK
     Route: 065
     Dates: start: 20171221
  6. ZOLADEX [Suspect]
     Active Substance: GOSERELIN ACETATE
     Indication: BREAST CANCER FEMALE
     Dosage: UNK
     Route: 065
     Dates: start: 20141222
  7. AROMASIN [Suspect]
     Active Substance: EXEMESTANE
     Indication: BREAST CANCER FEMALE
     Dosage: UNK
     Route: 065
     Dates: start: 20141222
  8. LAPATINIB [Suspect]
     Active Substance: LAPATINIB
     Indication: BREAST CANCER FEMALE
     Dosage: UNK
     Route: 065
     Dates: start: 20170222
  9. NAVELBINE [Suspect]
     Active Substance: VINORELBINE TARTRATE
     Indication: BREAST CANCER FEMALE
     Dosage: UNK
     Route: 065
     Dates: start: 201206
  10. XELODA [Suspect]
     Active Substance: CAPECITABINE
     Indication: BREAST CANCER FEMALE
     Dosage: UNK
     Route: 065
     Dates: start: 201206
  11. ZOMETA [Suspect]
     Active Substance: ZOLEDRONIC ACID
     Indication: BREAST CANCER FEMALE
     Dosage: UNK
     Route: 065
     Dates: start: 201206
  12. EVEROLIMUS. [Suspect]
     Active Substance: EVEROLIMUS
     Indication: BREAST CANCER FEMALE
     Dosage: UNK
     Route: 065
     Dates: start: 20141222
  13. KADCYLA [Concomitant]
     Active Substance: ADO-TRASTUZUMAB EMTANSINE
     Indication: PRODUCT USED FOR UNKNOWN INDICATION
     Dosage: UNK
     Route: 065
     Dates: start: 201611, end: 201701
  14. HERCEPTIN [Suspect]
     Active Substance: TRASTUZUMAB
     Indication: BREAST CANCER FEMALE
     Dosage: UNK
     Route: 065
     Dates: start: 201206

REACTIONS (15)
  - Neutropenia [Unknown]
  - Breast cancer female [Unknown]
  - Decreased appetite [Unknown]
  - Metastases to bone [Unknown]
  - Diarrhoea [Unknown]
  - Pruritus [Unknown]
  - Malignant neoplasm progression [Unknown]
  - Nausea [Unknown]
  - Mucosal inflammation [Unknown]
  - Metastases to lung [Unknown]
  - Metastases to spine [Not Recovered/Not Resolved]
  - Rash generalised [Unknown]
  - Weight decreased [Unknown]
  - Metastases to central nervous system [Unknown]
  - Metastases to liver [Unknown]

NARRATIVE: CASE EVENT DATE: 2012
